FAERS Safety Report 12950718 (Version 3)
Quarter: 2016Q4

REPORT INFORMATION
  Report Type: Spontaneous
  Country: US (occurrence: US)
  Receive Date: 20161116
  Receipt Date: 20161201
  Transmission Date: 20170207
  Serious: Yes (Other)
  Sender: FDA-Public Use
  Company Number: US-GILEAD-2016-0242868

PATIENT
  Age: 28 Year
  Sex: Female
  Weight: 81.63 kg

DRUGS (5)
  1. HARVONI [Suspect]
     Active Substance: LEDIPASVIR\SOFOSBUVIR
     Indication: CHRONIC HEPATITIS C
     Dosage: 1 DF, QD
     Route: 065
     Dates: start: 20160704, end: 20160926
  2. CLEOCIN [Concomitant]
     Active Substance: CLINDAMYCIN PHOSPHATE
     Indication: VAGINAL INFECTION
     Dosage: UNK
     Route: 061
  3. ATENOLOL. [Concomitant]
     Active Substance: ATENOLOL
     Indication: ANXIETY
     Dosage: 50 MG, QD
     Dates: start: 20151214
  4. PROMETHAZINE [Concomitant]
     Active Substance: PROMETHAZINE\PROMETHAZINE HYDROCHLORIDE
     Indication: NAUSEA
     Dosage: 12.5 MG, TID
     Dates: start: 20160112, end: 20160908
  5. PRENATAL DHA [Suspect]
     Active Substance: DOCONEXENT\MINERALS\VITAMINS
     Indication: PREGNANCY
     Dosage: 1 DF, QD

REACTIONS (2)
  - Maternal exposure during pregnancy [Recovered/Resolved]
  - Abortion spontaneous complete [Recovered/Resolved]

NARRATIVE: CASE EVENT DATE: 20160621
